FAERS Safety Report 8550094-7 (Version None)
Quarter: 2012Q3

REPORT INFORMATION
  Report Type: 
  Country: None (occurrence: None)
  Receive Date: 20120730
  Receipt Date: 20120725
  Transmission Date: 20120928
  Serious: Yes (Life-Threatening, Hospitalization, Other)
  Sender: FDA-Public Use
  Company Number: US-ASTRAZENECA-2011SE49566

PATIENT
  Age: 59 Year
  Sex: Male
  Weight: 127 kg

DRUGS (4)
  1. XANAX [Concomitant]
     Indication: ANXIOLYTIC THERAPY
     Route: 048
     Dates: start: 20090101
  2. NEXIUM [Suspect]
     Indication: DUODENAL ULCER
     Route: 048
  3. PAIN PILLS [Concomitant]
  4. NEXIUM [Suspect]
     Indication: GASTROOESOPHAGEAL REFLUX DISEASE
     Route: 048

REACTIONS (23)
  - PEPTIC ULCER HAEMORRHAGE [None]
  - UPPER GASTROINTESTINAL HAEMORRHAGE [None]
  - CACHEXIA [None]
  - GASTROOESOPHAGEAL REFLUX DISEASE [None]
  - INSOMNIA [None]
  - COLON CANCER [None]
  - HYPERCALCAEMIA [None]
  - MALNUTRITION [None]
  - HYPERGLYCAEMIA [None]
  - LYMPHOMA [None]
  - CROHN'S DISEASE [None]
  - COLITIS ULCERATIVE [None]
  - PROSTATIC SPECIFIC ANTIGEN INCREASED [None]
  - URINARY TRACT INFECTION [None]
  - APPARENT DEATH [None]
  - GASTRIC PERFORATION [None]
  - MELAENA [None]
  - SYNCOPE [None]
  - AMNESIA [None]
  - RENAL FAILURE ACUTE [None]
  - IMPAIRED GASTRIC EMPTYING [None]
  - HAEMORRHAGIC ANAEMIA [None]
  - DRUG DOSE OMISSION [None]
